FAERS Safety Report 10961673 (Version 1)
Quarter: 2015Q1

REPORT INFORMATION
  Report Type: Spontaneous
  Country: CN (occurrence: None)
  Receive Date: 20150325
  Receipt Date: 20150325
  Transmission Date: 20150721
  Serious: Yes (Other)
  Sender: FDA-Public Use
  Company Number: FK201501386

PATIENT
  Age: 68 Year
  Sex: Male

DRUGS (5)
  1. LIDOCAINE (LIDOCAINE) [Concomitant]
     Active Substance: LIDOCAINE
  2. PIRARUBICIN (PIRARUBICIN) (PIRARUBICIN) [Suspect]
     Active Substance: PIRARUBICIN
     Indication: HEPATOCELLULAR CARCINOMA
     Dates: start: 20100816, end: 20111229
  3. OXALIPLATIN (MANUFACTURER UNKNOWN) (OXALIPLATIN) (OXALIPLATIN) [Suspect]
     Active Substance: OXALIPLATIN
     Indication: HEPATOCELLULAR CARCINOMA
     Dates: start: 20100816, end: 20111229
  4. IODINATED OIL (IODINE)( (IODINE) [Suspect]
     Active Substance: IODINE
     Indication: HEPATOCELLULAR CARCINOMA
     Dates: start: 20100816, end: 20111229
  5. MITOMYCIN C [Suspect]
     Active Substance: MITOMYCIN
     Indication: HEPATOCELLULAR CARCINOMA
     Dates: start: 20100816, end: 20111229

REACTIONS (2)
  - Urinary retention [None]
  - Spinal cord injury thoracic [None]
